FAERS Safety Report 24651799 (Version 1)
Quarter: 2024Q4

REPORT INFORMATION
  Report Type: Report from Study
  Country: JP (occurrence: JP)
  Receive Date: 20241122
  Receipt Date: 20241122
  Transmission Date: 20250115
  Serious: Yes (Other)
  Sender: CSL BEHRING
  Company Number: JP-BEH-2024185829

PATIENT
  Age: 28 Year
  Sex: Female
  Weight: 78 kg

DRUGS (10)
  1. BERINERT [Suspect]
     Active Substance: HUMAN C1-ESTERASE INHIBITOR
     Indication: Hereditary angioedema
     Dosage: 10 ML, BIW
     Route: 058
     Dates: start: 20240220
  2. BERINERT [Suspect]
     Active Substance: HUMAN C1-ESTERASE INHIBITOR
     Indication: Prophylaxis
  3. FIRAZYR [Concomitant]
     Active Substance: ICATIBANT ACETATE
     Indication: Hereditary angioedema
     Dosage: 30 MG
     Route: 058
  4. FIRAZYR [Concomitant]
     Active Substance: ICATIBANT ACETATE
     Indication: Prophylaxis
     Dosage: UNK
  5. FIRAZYR [Concomitant]
     Active Substance: ICATIBANT ACETATE
     Indication: Diarrhoea
  6. FIRAZYR [Concomitant]
     Active Substance: ICATIBANT ACETATE
     Indication: Diarrhoea
  7. FIRAZYR [Concomitant]
     Active Substance: ICATIBANT ACETATE
     Indication: Abdominal distension
  8. FIRAZYR [Concomitant]
     Active Substance: ICATIBANT ACETATE
     Indication: Back pain
  9. FIRAZYR [Concomitant]
     Active Substance: ICATIBANT ACETATE
     Indication: Nausea
  10. FIRAZYR [Concomitant]
     Active Substance: ICATIBANT ACETATE
     Indication: Oedema peripheral

REACTIONS (15)
  - Hereditary angioedema [Unknown]
  - Hereditary angioedema [Unknown]
  - Hereditary angioedema [Unknown]
  - Hereditary angioedema [Unknown]
  - Hereditary angioedema [Unknown]
  - Hereditary angioedema [Unknown]
  - Hereditary angioedema [Unknown]
  - Diarrhoea [Recovered/Resolved]
  - Diarrhoea [Recovered/Resolved]
  - Abdominal distension [Recovered/Resolved]
  - Back pain [Recovered/Resolved]
  - Nausea [Recovered/Resolved]
  - Oedema peripheral [Recovered/Resolved]
  - Back pain [Recovered/Resolved]
  - Abdominal distension [Recovered/Resolved]

NARRATIVE: CASE EVENT DATE: 20240303
